FAERS Safety Report 6448325-2 (Version None)
Quarter: 2009Q4

REPORT INFORMATION
  Report Type: 
  Country: None (occurrence: None)
  Receive Date: 20091120
  Receipt Date: 20091116
  Transmission Date: 20100525
  Serious: Yes (Death)
  Sender: FDA-Public Use
  Company Number: PHHY2009BE47250

PATIENT
  Sex: Female

DRUGS (1)
  1. EXELON [Suspect]
     Indication: DEMENTIA WITH LEWY BODIES
     Dosage: UNK
     Route: 062
     Dates: start: 20090101

REACTIONS (3)
  - HYPERVIGILANCE [None]
  - INSOMNIA [None]
  - RESPIRATORY FAILURE [None]
